FAERS Safety Report 9695177 (Version 2)
Quarter: 2013Q4

REPORT INFORMATION
  Report Type: Spontaneous
  Country: MX (occurrence: MX)
  Receive Date: 20131119
  Receipt Date: 20131206
  Transmission Date: 20140711
  Serious: Yes (Hospitalization)
  Sender: FDA-Public Use
  Company Number: MX-NOVOPROD-392454

PATIENT
  Age: 62 Year
  Sex: Male
  Weight: 82 kg

DRUGS (6)
  1. VICTOZA [Suspect]
     Indication: TYPE 2 DIABETES MELLITUS
     Dosage: 1.2 MG, QD
     Route: 058
     Dates: start: 20110808
  2. LEVEMIR FLEXPEN [Suspect]
     Indication: TYPE 2 DIABETES MELLITUS
     Dosage: 30 U, QD
     Route: 058
     Dates: start: 20130520
  3. PRAZOSIN HCL [Concomitant]
     Dosage: 2 TAB, QD
     Route: 048
     Dates: start: 2012
  4. DEFLAZACORT [Concomitant]
     Dosage: 6 MG, QD
     Route: 048
     Dates: start: 201305
  5. METOPROLOL [Concomitant]
     Dosage: 100 MG, QD
     Route: 048
     Dates: start: 2012
  6. LOSARTAN + HIDROCLOROTIAZIDA [Concomitant]
     Dosage: 50 MG, QD
     Route: 048
     Dates: start: 201308

REACTIONS (3)
  - Prostatomegaly [Not Recovered/Not Resolved]
  - Urinary tract infection [Not Recovered/Not Resolved]
  - Pancreatitis [Not Recovered/Not Resolved]
